FAERS Safety Report 9393658 (Version 4)
Quarter: 2013Q3

REPORT INFORMATION
  Report Type: Spontaneous
  Country: JP (occurrence: JP)
  Receive Date: 20130710
  Receipt Date: 20130913
  Transmission Date: 20140515
  Serious: Yes (Hospitalization)
  Sender: FDA-Public Use
  Company Number: JP-GLAXOSMITHKLINE-B0905632A

PATIENT
  Age: 51 Year
  Sex: Male

DRUGS (2)
  1. LAMICTAL [Suspect]
     Indication: PAIN
     Dosage: 25MG ALTERNATE DAYS
     Route: 048
     Dates: start: 20121226, end: 20130116
  2. DEPAKENE-R [Suspect]
     Indication: PAIN
     Dosage: 200MG TWICE PER DAY
     Route: 048
     Dates: start: 20121226, end: 20130116

REACTIONS (16)
  - Stevens-Johnson syndrome [Recovered/Resolved]
  - Oral pain [Unknown]
  - Rash [Unknown]
  - Rash [Unknown]
  - Rash papular [Unknown]
  - Conjunctival hyperaemia [Unknown]
  - Lip erosion [Unknown]
  - Lymphadenopathy [Unknown]
  - Rash macular [Unknown]
  - Generalised erythema [Unknown]
  - Swelling face [Unknown]
  - Drug eruption [Unknown]
  - Oral mucosa erosion [Unknown]
  - Ocular hyperaemia [Unknown]
  - Erythema of eyelid [Unknown]
  - Pyrexia [Unknown]
